FAERS Safety Report 25933285 (Version 1)
Quarter: 2025Q4

REPORT INFORMATION
  Report Type: Other
  Country: GB (occurrence: GB)
  Receive Date: 20251017
  Receipt Date: 20251017
  Transmission Date: 20260117
  Serious: Yes (Hospitalization, Other)
  Sender: ZYDUS PHARM
  Company Number: None

PATIENT

DRUGS (4)
  1. APIXABAN [Interacting]
     Active Substance: APIXABAN
     Indication: Pulmonary embolism
     Dosage: 5 MILLIGRAM, BID
     Route: 065
     Dates: start: 20250910, end: 20251011
  2. NAPROXEN [Interacting]
     Active Substance: NAPROXEN
     Indication: Pain
     Dosage: 500 MILLIGRAM, QD
     Route: 065
  3. VORTIOXETINE [Interacting]
     Active Substance: VORTIOXETINE
     Indication: Pain
     Dosage: UNK
     Route: 065
  4. VORTIOXETINE [Interacting]
     Active Substance: VORTIOXETINE
     Indication: Anxiety

REACTIONS (2)
  - Drug interaction [Unknown]
  - Upper gastrointestinal haemorrhage [Not Recovered/Not Resolved]

NARRATIVE: CASE EVENT DATE: 20251011
